FAERS Safety Report 6237338-1 (Version None)
Quarter: 2009Q2

REPORT INFORMATION
  Report Type: 
  Country: None (occurrence: None)
  Receive Date: 20090619
  Receipt Date: 20090610
  Transmission Date: 20091009
  Serious: Yes (Hospitalization)
  Sender: FDA-Public Use
  Company Number: US-ELI_LILLY_AND_COMPANY-US200906002655

PATIENT
  Sex: Male
  Weight: 176.87 kg

DRUGS (12)
  1. BYETTA [Suspect]
     Indication: TYPE 2 DIABETES MELLITUS
     Dosage: 5 UG, 2/D
     Route: 058
     Dates: start: 20080101, end: 20080101
  2. BYETTA [Suspect]
     Dosage: 10 UG, 2/D
     Route: 058
     Dates: start: 20080101
  3. AVANDAMET [Concomitant]
     Dosage: 1000 MG, 2/D
  4. GLIPIZIDE [Concomitant]
     Dosage: UNK, DAILY (1/D)
  5. ZANTAC [Concomitant]
     Dosage: UNK, 2/D
  6. RELAFEN [Concomitant]
     Dosage: UNK, 2/D
  7. MS CONTIN [Concomitant]
     Indication: PAIN
     Dosage: UNK, 3/D
  8. LYRICA [Concomitant]
     Dosage: UNK, 2/D
  9. TESTOSTERONE [Concomitant]
     Dosage: UNK, WEEKLY (1/W)
  10. VITAMIN D [Concomitant]
     Dosage: UNK, OTHER
  11. NORDITROPIN [Concomitant]
     Dosage: UNK, EACH MORNING
  12. THYROID TAB [Concomitant]
     Dosage: UNK, DAILY (1/D)

REACTIONS (7)
  - ARTHROPATHY [None]
  - BLOOD GLUCOSE INCREASED [None]
  - CELLULITIS [None]
  - DECREASED APPETITE [None]
  - ERUCTATION [None]
  - FLATULENCE [None]
  - INCREASED APPETITE [None]
